FAERS Safety Report 16994621 (Version 1)
Quarter: 2019Q4

REPORT INFORMATION
  Report Type: Spontaneous
  Country: ES (occurrence: ES)
  Receive Date: 20191105
  Receipt Date: 20191105
  Transmission Date: 20200122
  Serious: Yes (Hospitalization, Other)
  Sender: FDA-Public Use
  Company Number: ES-SCIEGEN PHARMACEUTICALS INC-2019SCILIT00333

PATIENT
  Age: 69 Year
  Sex: Female

DRUGS (7)
  1. PARACETAMOL [Suspect]
     Active Substance: ACETAMINOPHEN
  2. DULOXETINE. [Suspect]
     Active Substance: DULOXETINE
  3. CLOPIDOGREL [Interacting]
     Active Substance: CLOPIDOGREL BISULFATE
  4. AMLODIPINE [Suspect]
     Active Substance: AMLODIPINE BESYLATE
  5. ATORVASTATIN CALCIUM. [Suspect]
     Active Substance: ATORVASTATIN CALCIUM
  6. OMEPRAZOLE. [Suspect]
     Active Substance: OMEPRAZOLE
  7. TICAGRELOR. [Interacting]
     Active Substance: TICAGRELOR

REACTIONS (6)
  - Hyperkalaemia [Unknown]
  - Acute coronary syndrome [Fatal]
  - Cardiac failure [Unknown]
  - Drug interaction [Unknown]
  - Renal failure [Recovering/Resolving]
  - Rhabdomyolysis [Unknown]
